FAERS Safety Report 5163909-X (Version None)
Quarter: 2006Q4

REPORT INFORMATION
  Report Type: 
  Country: None (occurrence: None)
  Receive Date: 20061204
  Receipt Date: 20061128
  Transmission Date: 20070319
  Serious: No
  Sender: FDA-Public Use
  Company Number: 2006PK02476

PATIENT
  Age: 10781 Day
  Sex: Male
  Weight: 75 kg

DRUGS (9)
  1. SEROQUEL [Suspect]
     Indication: PSYCHOTIC DISORDER
     Route: 048
     Dates: start: 20061016, end: 20061017
  2. SEROQUEL [Suspect]
     Route: 048
     Dates: start: 20061017, end: 20061023
  3. SEROQUEL [Suspect]
     Route: 048
     Dates: start: 20061024, end: 20061025
  4. SEROQUEL [Suspect]
     Route: 048
     Dates: start: 20061026, end: 20061027
  5. SEROQUEL [Suspect]
     Route: 048
     Dates: start: 20061028, end: 20061101
  6. RISPERDAL [Concomitant]
     Indication: PSYCHOTIC DISORDER
     Route: 048
     Dates: start: 20060929, end: 20061023
  7. TAVOR [Concomitant]
     Indication: ANXIETY
     Route: 048
     Dates: start: 20060927
  8. VALPROATE SODIUM [Concomitant]
     Indication: EPILEPSY
     Route: 048
     Dates: start: 20060920
  9. PANTOZOL [Concomitant]
     Indication: PROPHYLAXIS
     Route: 048
     Dates: start: 20061030

REACTIONS (1)
  - LEUKOPENIA [None]
